FAERS Safety Report 10899300 (Version 2)
Quarter: 2015Q1

REPORT INFORMATION
  Report Type: Spontaneous
  Country: IT (occurrence: IT)
  Receive Date: 20150309
  Receipt Date: 20150320
  Transmission Date: 20150721
  Serious: Yes (Other)
  Sender: FDA-Public Use
  Company Number: IT-PFIZER INC-2015080314

PATIENT
  Age: 14 Year
  Sex: Female

DRUGS (2)
  1. XANAX [Suspect]
     Active Substance: ALPRAZOLAM
     Indication: PANIC ATTACK
     Dosage: 40 DROPS, DAILY
     Route: 048
     Dates: start: 20150212, end: 20150226
  2. XANAX [Suspect]
     Active Substance: ALPRAZOLAM
     Dosage: 20 DROPS, DAILY
     Route: 048
     Dates: start: 20150227

REACTIONS (4)
  - Sedation [Recovered/Resolved]
  - Overdose [Unknown]
  - Asthenia [Recovered/Resolved]
  - Product use issue [Not Recovered/Not Resolved]

NARRATIVE: CASE EVENT DATE: 20150212
